FAERS Safety Report 7302138-8 (Version None)
Quarter: 2011Q1

REPORT INFORMATION
  Report Type: 
  Country: None (occurrence: None)
  Receive Date: 20110218
  Receipt Date: 20110211
  Transmission Date: 20110831
  Serious: Yes (Death, Hospitalization)
  Sender: FDA-Public Use
  Company Number: TW-MERCK-1102USA01396

PATIENT
  Age: 84 Year
  Sex: Male
  Weight: 70 kg

DRUGS (1)
  1. FOSAMAX PLUS D [Suspect]
     Indication: OSTEOPOROSIS
     Route: 048
     Dates: start: 20090716, end: 20101230

REACTIONS (1)
  - MYOCARDIAL INFARCTION [None]
